FAERS Safety Report 6550118-2 (Version None)
Quarter: 2010Q1

REPORT INFORMATION
  Report Type: 
  Country: None (occurrence: None)
  Receive Date: 20100125
  Receipt Date: 20100115
  Transmission Date: 20100710
  Serious: Yes (Other)
  Sender: FDA-Public Use
  Company Number: US-JNJCH-2010001530

PATIENT
  Age: 52 Year
  Sex: Male
  Weight: 137 kg

DRUGS (1)
  1. ROLAIDS [Suspect]
     Indication: ABDOMINAL DISCOMFORT
     Dosage: TEXT:UNSPECIFIED TWICE A DAY AS NEEDED
     Route: 048
     Dates: start: 20091006, end: 20100116

REACTIONS (2)
  - GASTRIC DISORDER [None]
  - MALAISE [None]
